FAERS Safety Report 8168548-4 (Version None)
Quarter: 2012Q1

REPORT INFORMATION
  Report Type: 
  Country: None (occurrence: None)
  Receive Date: 20120227
  Receipt Date: 20120227
  Transmission Date: 20120608
  Serious: Yes (Other)
  Sender: FDA-Public Use
  Company Number: None

PATIENT
  Age: 35 Year
  Sex: Female
  Weight: 65.77 kg

DRUGS (1)
  1. E-CIGARETTE [Suspect]
     Dosage: HIGH
     Route: 055
     Dates: start: 20120119, end: 20120225

REACTIONS (10)
  - DISORIENTATION [None]
  - WHEEZING [None]
  - PARAESTHESIA [None]
  - DYSPNOEA [None]
  - SENSATION OF HEAVINESS [None]
  - FEAR [None]
  - DIZZINESS [None]
  - NAUSEA [None]
  - ASTHENIA [None]
  - MUSCLE SPASMS [None]
